FAERS Safety Report 10789611 (Version 1)
Quarter: 2015Q1

REPORT INFORMATION
  Report Type: Report from Study
  Country: CA (occurrence: CA)
  Receive Date: 20150212
  Receipt Date: 20150212
  Transmission Date: 20150721
  Serious: Yes (Hospitalization)
  Sender: FDA-Public Use
  Company Number: CA-JNJFOC-20150202902

PATIENT
  Age: 8 Year
  Sex: Male
  Weight: 36.3 kg

DRUGS (1)
  1. REMICADE [Suspect]
     Active Substance: INFLIXIMAB
     Indication: CROHN^S DISEASE
     Route: 042
     Dates: start: 2013

REACTIONS (2)
  - Fall [Recovering/Resolving]
  - Orthosis user [Recovering/Resolving]

NARRATIVE: CASE EVENT DATE: 20150129
